FAERS Safety Report 9784665 (Version 3)
Quarter: 2014Q1

REPORT INFORMATION
  Report Type: Report from Study
  Country: CA (occurrence: CA)
  Receive Date: 20131226
  Receipt Date: 20140131
  Transmission Date: 20141002
  Serious: Yes (Other)
  Sender: FDA-Public Use
  Company Number: CA-ABBVIE-13P-028-1034160-00

PATIENT
  Sex: Female

DRUGS (3)
  1. HUMIRA [Suspect]
     Indication: RHEUMATOID ARTHRITIS
     Route: 058
     Dates: start: 20050914
  2. HUMIRA [Suspect]
     Route: 058
     Dates: start: 20130102, end: 20131127
  3. HUMIRA [Suspect]
     Route: 058

REACTIONS (5)
  - Angiopathy [Not Recovered/Not Resolved]
  - Skin necrosis [Not Recovered/Not Resolved]
  - Arterial occlusive disease [Not Recovered/Not Resolved]
  - Nasopharyngitis [Recovered/Resolved]
  - Postoperative wound infection [Recovered/Resolved]
